FAERS Safety Report 11168267 (Version 3)
Quarter: 2017Q1

REPORT INFORMATION
  Report Type: Spontaneous
  Country: JP (occurrence: JP)
  Receive Date: 20150605
  Receipt Date: 20170127
  Transmission Date: 20170428
  Serious: Yes (Hospitalization)
  Sender: FDA-Public Use
  Company Number: JP-ELI_LILLY_AND_COMPANY-JP201506001565

PATIENT
  Age: 39 Year
  Sex: Female

DRUGS (2)
  1. NOVOLIN R [Suspect]
     Active Substance: INSULIN HUMAN
     Indication: DIABETIC KETOACIDOSIS
     Dosage: UNK
     Route: 042
  2. HUMALOG [Suspect]
     Active Substance: INSULIN LISPRO
     Indication: TYPE 1 DIABETES MELLITUS
     Dosage: UNK
     Route: 058

REACTIONS (6)
  - Diabetes mellitus inadequate control [Recovered/Resolved]
  - Hypersensitivity [Recovered/Resolved]
  - Diabetic ketoacidosis [Recovered/Resolved]
  - Anti-insulin antibody increased [Recovered/Resolved]
  - Cellulitis [Unknown]
  - Hyperglycaemia [Recovered/Resolved]
